FAERS Safety Report 16710977 (Version 1)
Quarter: 2019Q3

REPORT INFORMATION
  Report Type: Spontaneous
  Country: US (occurrence: US)
  Receive Date: 20190701
  Receipt Date: 20190701
  Transmission Date: 20191004
  Serious: No
  Sender: FDA-Public Use
  Company Number: None

PATIENT
  Age: 79 Year
  Sex: Female

DRUGS (1)
  1. ZOLEDRON ACID SDV 5MG/100ML [Suspect]
     Active Substance: ZOLEDRONIC ACID
     Dosage: ?          OTHER FREQUENCY:UNKNOWN;?
     Route: 042
     Dates: start: 201805

REACTIONS (2)
  - Influenza like illness [None]
  - Asthenia [None]

NARRATIVE: CASE EVENT DATE: 20180509
